FAERS Safety Report 19138938 (Version 1)
Quarter: 2021Q2

REPORT INFORMATION
  Report Type: Spontaneous
  Country: US (occurrence: US)
  Receive Date: 20210414
  Receipt Date: 20210414
  Transmission Date: 20210717
  Serious: Yes (Death)
  Sender: FDA-Public Use
  Company Number: None

PATIENT
  Age: 78 Year
  Sex: Male

DRUGS (21)
  1. NARCAN [Concomitant]
     Active Substance: NALOXONE HYDROCHLORIDE
  2. ESBRIET [Suspect]
     Active Substance: PIRFENIDONE
     Indication: PULMONARY FIBROSIS
     Route: 048
     Dates: start: 20190802, end: 20210413
  3. ELIQUIS [Concomitant]
     Active Substance: APIXABAN
  4. GABAPENTIN. [Concomitant]
     Active Substance: GABAPENTIN
  5. METOLAZONE. [Concomitant]
     Active Substance: METOLAZONE
  6. MORPHINE SUL [Concomitant]
     Active Substance: MORPHINE SULFATE
  7. OMEPRAZOLE. [Concomitant]
     Active Substance: OMEPRAZOLE
  8. OXYCODONE AND ACETAMINOPHEN [Concomitant]
     Active Substance: ACETAMINOPHEN\OXYCODONE HYDROCHLORIDE
  9. LISINOPRIL. [Concomitant]
     Active Substance: LISINOPRIL
  10. PREDNISONE. [Concomitant]
     Active Substance: PREDNISONE
  11. SIMVASTATIN. [Concomitant]
     Active Substance: SIMVASTATIN
  12. FUROSEMIDE. [Concomitant]
     Active Substance: FUROSEMIDE
  13. ATENOLOL. [Concomitant]
     Active Substance: ATENOLOL
  14. DOXYCYCL HYC [Concomitant]
  15. NIACIN. [Concomitant]
     Active Substance: NIACIN
  16. NIFEDIPINE. [Concomitant]
     Active Substance: NIFEDIPINE
  17. POT CHOLRIDE ER [Concomitant]
  18. VITAMIN D3 [Concomitant]
     Active Substance: CHOLECALCIFEROL
  19. MAGOX 400 [Concomitant]
     Active Substance: MAGNESIUM OXIDE
  20. POT CL MICRO ER [Concomitant]
  21. PROMETHAZINE [Concomitant]
     Active Substance: PROMETHAZINE HYDROCHLORIDE

REACTIONS (1)
  - Death [None]

NARRATIVE: CASE EVENT DATE: 20210413
